FAERS Safety Report 6447532-2 (Version None)
Quarter: 2009Q4

REPORT INFORMATION
  Report Type: 
  Country: None (occurrence: None)
  Receive Date: 20091119
  Receipt Date: 20091110
  Transmission Date: 20100525
  Serious: Yes (Death, Hospitalization, Other)
  Sender: FDA-Public Use
  Company Number: US-BAXTER-2008BH001411

PATIENT
  Age: 65 Year
  Sex: Female
  Weight: 67 kg

DRUGS (51)
  1. HEPARIN SODIUM INJECTION [Suspect]
     Indication: THROMBOSIS PROPHYLAXIS
     Route: 010
     Dates: start: 20071001, end: 20071201
  2. HEPARIN SODIUM INJECTION [Suspect]
     Indication: PULMONARY EMBOLISM
     Route: 010
     Dates: start: 20071001, end: 20071201
  3. HEPARIN SODIUM INJECTION [Suspect]
     Route: 042
     Dates: start: 20071217, end: 20071217
  4. HEPARIN SODIUM INJECTION [Suspect]
     Route: 042
     Dates: start: 20071217, end: 20071217
  5. HEPARIN SODIUM INJECTION [Suspect]
     Route: 042
     Dates: start: 20071119, end: 20071119
  6. HEPARIN SODIUM INJECTION [Suspect]
     Route: 042
     Dates: start: 20071119, end: 20071119
  7. HEPARIN SODIUM INJECTION [Suspect]
     Route: 042
     Dates: start: 20071217, end: 20071217
  8. HEPARIN SODIUM INJECTION [Suspect]
     Route: 042
     Dates: start: 20071217, end: 20071217
  9. HEPARIN SODIUM INJECTION [Suspect]
     Route: 042
     Dates: start: 20071119, end: 20071119
  10. HEPARIN SODIUM INJECTION [Suspect]
     Route: 042
     Dates: start: 20071119, end: 20071119
  11. HEPARIN SODIUM INJECTION [Suspect]
     Route: 042
     Dates: start: 20071218, end: 20071218
  12. HEPARIN SODIUM INJECTION [Suspect]
     Route: 042
     Dates: start: 20071218, end: 20071218
  13. HEPARIN SODIUM 5,000 UNITS IN DEXTROSE 5% [Suspect]
     Indication: PULMONARY EMBOLISM
     Route: 042
     Dates: start: 20071218, end: 20071218
  14. HEPARIN SODIUM 5,000 UNITS IN DEXTROSE 5% [Suspect]
     Route: 042
     Dates: start: 20071218, end: 20071219
  15. LABETALOL HYDROCHLORIDE [Concomitant]
     Indication: DRUG USE FOR UNKNOWN INDICATION
     Route: 048
     Dates: start: 20071029
  16. ALBUTEROL [Concomitant]
     Indication: DRUG USE FOR UNKNOWN INDICATION
     Route: 055
  17. PREDNISONE [Concomitant]
     Indication: DRUG USE FOR UNKNOWN INDICATION
     Route: 048
     Dates: start: 20071015
  18. CLONIDINE [Concomitant]
     Indication: DRUG USE FOR UNKNOWN INDICATION
     Route: 048
     Dates: start: 20071029
  19. LISINOPRIL [Concomitant]
     Indication: DRUG USE FOR UNKNOWN INDICATION
     Route: 048
     Dates: start: 20071029
  20. AMLODIPINE [Concomitant]
     Indication: DRUG USE FOR UNKNOWN INDICATION
     Route: 048
     Dates: start: 20071029
  21. XANAX [Concomitant]
     Indication: ANXIETY
     Route: 048
     Dates: start: 20071029
  22. VENOFER [Concomitant]
     Indication: DRUG USE FOR UNKNOWN INDICATION
     Route: 042
  23. ZOFRAN [Concomitant]
     Indication: NAUSEA
     Route: 048
     Dates: start: 20071029
  24. FLOVENT [Concomitant]
     Indication: DRUG USE FOR UNKNOWN INDICATION
     Route: 055
     Dates: start: 20071029
  25. MEPHYTON [Concomitant]
     Indication: DRUG USE FOR UNKNOWN INDICATION
     Route: 048
     Dates: start: 20071029
  26. ZEMPLAR [Concomitant]
     Indication: DRUG USE FOR UNKNOWN INDICATION
     Route: 042
     Dates: start: 20071108
  27. FOLBEE PLUS [Concomitant]
     Indication: DRUG USE FOR UNKNOWN INDICATION
     Route: 065
     Dates: start: 20071019
  28. PERCOCET [Concomitant]
     Indication: PAIN
     Route: 048
     Dates: start: 20071019
  29. NOVOLOG [Concomitant]
     Indication: DRUG USE FOR UNKNOWN INDICATION
     Route: 065
     Dates: start: 20071017
  30. CELEXA [Concomitant]
     Indication: DRUG USE FOR UNKNOWN INDICATION
     Route: 048
     Dates: start: 20071015
  31. PRILOSEC [Concomitant]
     Indication: DRUG USE FOR UNKNOWN INDICATION
     Route: 048
     Dates: start: 20071015
  32. RENAGEL [Concomitant]
     Indication: DRUG USE FOR UNKNOWN INDICATION
     Route: 048
     Dates: start: 20071015
  33. EPOGEN [Concomitant]
     Indication: DRUG USE FOR UNKNOWN INDICATION
     Route: 042
     Dates: start: 20071108
  34. ALBUTEROL [Concomitant]
     Route: 055
     Dates: start: 20071015
  35. CORDARONE [Concomitant]
     Indication: CORONARY ARTERY DISEASE
     Route: 048
  36. ATACAND [Concomitant]
     Indication: HYPERTENSION
     Route: 048
  37. CATAPRES                                /UNK/ [Concomitant]
     Indication: HYPERTENSION
     Route: 048
  38. SENNA [Concomitant]
     Indication: CONSTIPATION
     Route: 048
  39. HEMORRHOIDAL HC [Concomitant]
     Indication: HAEMORRHOIDS
     Route: 054
  40. NOVOLIN [Concomitant]
     Indication: DRUG USE FOR UNKNOWN INDICATION
     Route: 058
  41. LEVAQUIN [Concomitant]
     Indication: PROPHYLAXIS
     Route: 048
  42. PRINIVIL [Concomitant]
     Indication: CORONARY ARTERY DISEASE
     Route: 048
  43. MEGACE [Concomitant]
     Indication: DECREASED APPETITE
     Route: 048
  44. LOPRESSOR [Concomitant]
     Indication: HYPERTENSION
     Route: 048
  45. REGLAN [Concomitant]
     Indication: DIABETIC GASTROPARESIS
     Route: 048
  46. FLAGYL [Concomitant]
     Indication: PROPHYLAXIS
     Route: 048
  47. PRILOSEC [Concomitant]
     Indication: GASTROOESOPHAGEAL REFLUX DISEASE
     Route: 048
  48. TIOTROPIUM BROMIDE [Concomitant]
     Indication: CHRONIC OBSTRUCTIVE PULMONARY DISEASE
     Route: 055
  49. MEDROL [Concomitant]
     Indication: CHRONIC OBSTRUCTIVE PULMONARY DISEASE
     Route: 065
  50. DIPHENHYDRAMINE HCL [Concomitant]
     Indication: PRURITUS
     Route: 048
  51. CITRACAL [Concomitant]
     Indication: CONSTIPATION
     Route: 048

REACTIONS (34)
  - ABDOMINAL PAIN [None]
  - ANXIETY [None]
  - ASTHENIA [None]
  - ATRIAL FIBRILLATION [None]
  - CHEST PAIN [None]
  - DECREASED APPETITE [None]
  - DEVICE RELATED INFECTION [None]
  - DIARRHOEA [None]
  - DIZZINESS [None]
  - DYSPHAGIA [None]
  - DYSPNOEA [None]
  - ENDOCARDITIS [None]
  - FACE OEDEMA [None]
  - FATIGUE [None]
  - GENERAL PHYSICAL HEALTH DETERIORATION [None]
  - HAEMORRHOIDS [None]
  - HYPOKALAEMIA [None]
  - HYPOMAGNESAEMIA [None]
  - HYPOTENSION [None]
  - LETHARGY [None]
  - MALAISE [None]
  - MALNUTRITION [None]
  - NAUSEA [None]
  - PLEURAL EFFUSION [None]
  - PULMONARY EMBOLISM [None]
  - PYREXIA [None]
  - RENAL FAILURE CHRONIC [None]
  - RESPIRATORY FAILURE [None]
  - SEPSIS [None]
  - SHOCK [None]
  - SKIN DISCOLOURATION [None]
  - UROSEPSIS [None]
  - VENTRICULAR FIBRILLATION [None]
  - VOMITING [None]
